FAERS Safety Report 8870472 (Version 1)
Quarter: 2012Q4

REPORT INFORMATION
  Report Type: 
  Country: US (occurrence: US)
  Receive Date: 20121026
  Receipt Date: 20121026
  Transmission Date: 20130627
  Serious: No
  Sender: FDA-Public Use
  Company Number: US-AMGEN-USASP2012047224

PATIENT
  Age: 74 Year
  Sex: Female
  Weight: 65.76 kg

DRUGS (9)
  1. ENBREL [Suspect]
     Indication: PRODUCT USED FOR UNKNOWN INDICATION
     Dosage: 50 mg, qwk
     Route: 058
  2. PREMARIN [Concomitant]
     Dosage: 0.3 mg, UNK
  3. VITAMIN C                          /00008001/ [Concomitant]
     Dosage: 100 mg, UNK
  4. ASPIRIN (E.C.) [Concomitant]
     Dosage: 81 mg, UNK
  5. ALEVE [Concomitant]
     Dosage: 220 mg, UNK
  6. CALCIUM [Concomitant]
     Dosage: 500 UNK, UNK
  7. PROTEGRA [Concomitant]
     Dosage: UNK
  8. CRANBERRY                          /01512301/ [Concomitant]
     Dosage: 200 mg, UNK
  9. MULTIVITAMIN                       /00097801/ [Concomitant]
     Dosage: UNK

REACTIONS (2)
  - Arthropod bite [Unknown]
  - White blood cell disorder [Unknown]
